FAERS Safety Report 25084307 (Version 2)
Quarter: 2025Q2

REPORT INFORMATION
  Report Type: Spontaneous
  Country: GB (occurrence: GB)
  Receive Date: 20250317
  Receipt Date: 20250422
  Transmission Date: 20250716
  Serious: No
  Sender: PFIZER
  Company Number: GB-PFIZER INC-PV202500030743

PATIENT
  Age: 27 Year
  Sex: Female

DRUGS (1)
  1. GENOTROPIN [Suspect]
     Active Substance: SOMATROPIN
     Dosage: 0.8 MG, 1X/DAY
     Route: 058

REACTIONS (4)
  - Product preparation issue [Unknown]
  - Product deposit [Unknown]
  - Device difficult to use [Unknown]
  - Drug dose omission by device [Unknown]
